FAERS Safety Report 10047308 (Version 1)
Quarter: 2014Q1

REPORT INFORMATION
  Report Type: Spontaneous
  Country: US (occurrence: US)
  Receive Date: 20140331
  Receipt Date: 20140331
  Transmission Date: 20141002
  Serious: No
  Sender: FDA-Public Use
  Company Number: US-MYLANLABS-2014S1000645

PATIENT
  Sex: Female
  Weight: 85.28 kg

DRUGS (16)
  1. FENTANYL TRANSDERMAL SYSTEM [Suspect]
     Indication: BONE DISORDER
     Dosage: CHANGED Q72H
     Route: 062
     Dates: start: 2009
  2. FENTANYL TRANSDERMAL SYSTEM [Suspect]
     Indication: PAIN
     Dosage: CHANGED Q72H
     Route: 062
     Dates: start: 2009
  3. HYDROCODONE [Concomitant]
  4. SOMA [Concomitant]
  5. AMBIEN [Concomitant]
  6. TRAZODONE [Concomitant]
  7. LEXAPRO /01588501/ [Concomitant]
  8. ATIVAN [Concomitant]
  9. METFORMIN [Concomitant]
     Indication: DIABETES MELLITUS
  10. FUROSEMIDE [Concomitant]
     Indication: FLUID RETENTION
  11. LEVOTHYROXINE [Concomitant]
  12. LISINOPRIL [Concomitant]
     Indication: BLOOD PRESSURE
  13. PRAVASTATIN [Concomitant]
     Indication: BLOOD CHOLESTEROL
  14. POTASSIUM CHLORIDE [Concomitant]
  15. VITAMIN D [Concomitant]
  16. FISH OIL [Concomitant]

REACTIONS (3)
  - Pain [Not Recovered/Not Resolved]
  - Inappropriate schedule of drug administration [Not Recovered/Not Resolved]
  - False negative investigation result [Not Recovered/Not Resolved]
